FAERS Safety Report 4954501-8 (Version None)
Quarter: 2006Q1

REPORT INFORMATION
  Report Type: 
  Country: None (occurrence: None)
  Receive Date: 20060322
  Receipt Date: 20060308
  Transmission Date: 20060701
  Serious: Yes (Hospitalization)
  Sender: FDA-Public Use
  Company Number: 2006031742

PATIENT
  Age: 73 Year
  Sex: Male

DRUGS (1)
  1. SOLU-MEDROL [Suspect]
     Indication: ASTHMA
     Dosage: 360 MG, INTRAVENOUS
     Route: 042
     Dates: start: 20060220, end: 20060221

REACTIONS (3)
  - ASTHMA [None]
  - CONDITION AGGRAVATED [None]
  - DRUG EFFECT DECREASED [None]
